FAERS Safety Report 9269734 (Version 1)
Quarter: 2013Q2

REPORT INFORMATION
  Report Type: Spontaneous
  Country: FR (occurrence: FR)
  Receive Date: 20130503
  Receipt Date: 20130503
  Transmission Date: 20140414
  Serious: Yes (Life-Threatening)
  Sender: FDA-Public Use
  Company Number: FR-BRISTOL-MYERS SQUIBB COMPANY-18844209

PATIENT
  Age: 59 Year
  Sex: 0

DRUGS (9)
  1. GLUCOPHAGE [Suspect]
     Route: 048
     Dates: end: 20130313
  2. TERALITHE [Suspect]
     Route: 048
     Dates: end: 20130313
  3. SERESTA [Suspect]
     Route: 048
     Dates: end: 20130313
  4. COVERSYL [Concomitant]
  5. IMOVANE [Concomitant]
  6. LEPTICUR [Concomitant]
  7. AMLOR [Concomitant]
  8. RISPERDAL [Concomitant]
  9. NOZINAN [Concomitant]

REACTIONS (4)
  - Renal failure acute [Recovered/Resolved]
  - Disturbance in attention [Recovered/Resolved]
  - Rhabdomyolysis [Recovered/Resolved]
  - Lactic acidosis [Recovered/Resolved]
